FAERS Safety Report 10528090 (Version 2)
Quarter: 2014Q4

REPORT INFORMATION
  Report Type: Spontaneous
  Country: SE (occurrence: SE)
  Receive Date: 20141020
  Receipt Date: 20141229
  Transmission Date: 20150528
  Serious: Yes (Life-Threatening, Hospitalization)
  Sender: FDA-Public Use
  Company Number: SE-TEVA-514830ISR

PATIENT
  Age: 32 Year
  Sex: Female

DRUGS (7)
  1. TARGINIQ ER [Suspect]
     Active Substance: NALOXONE HYDROCHLORIDE\OXYCODONE HYDROCHLORIDE
     Route: 048
     Dates: start: 20130615, end: 20130615
  2. FENTANYL. [Suspect]
     Active Substance: FENTANYL
     Dosage: 20 MG, 3 ST
     Route: 062
     Dates: start: 20130615, end: 20130615
  3. BETNOVAT [Concomitant]
     Active Substance: BETAMETHASONE
  4. DUAC [Concomitant]
     Active Substance: BENZOYL PEROXIDE\CLINDAMYCIN PHOSPHATE
  5. XYLOCAINE [Concomitant]
     Active Substance: LIDOCAINE HYDROCHLORIDE
  6. OXASCAND [Suspect]
     Active Substance: OXAZEPAM
     Route: 048
     Dates: start: 20130615, end: 20130615
  7. DOLCONTIN [Suspect]
     Active Substance: MORPHINE
     Route: 048
     Dates: start: 20130615, end: 20130615

REACTIONS (2)
  - Suicidal ideation [Unknown]
  - Toxicity to various agents [Recovered/Resolved]

NARRATIVE: CASE EVENT DATE: 20130615
